FAERS Safety Report 4339070-8 (Version None)
Quarter: 2004Q2

REPORT INFORMATION
  Report Type: 
  Country: None (occurrence: None)
  Receive Date: 20040412
  Receipt Date: 20040326
  Transmission Date: 20050107
  Serious: Yes (Hospitalization, Other)
  Sender: FDA-Public Use
  Company Number: 190444

PATIENT
  Sex: Female

DRUGS (7)
  1. AVONEX [Suspect]
     Indication: MULTIPLE SCLEROSIS
  2. ACCUPRIL [Concomitant]
  3. LODINE [Concomitant]
  4. ZOLOFT [Concomitant]
  5. NEURONTIN [Concomitant]
  6. DESYREL [Concomitant]
  7. BACLOFEN [Concomitant]

REACTIONS (4)
  - FLUID OVERLOAD [None]
  - KNEE ARTHROPLASTY [None]
  - PERICARDIAL EFFUSION [None]
  - PROCEDURAL COMPLICATION [None]
